FAERS Safety Report 4394036-7 (Version None)
Quarter: 2004Q3

REPORT INFORMATION
  Report Type: 
  Country: None (occurrence: None)
  Receive Date: 20040708
  Receipt Date: 20040702
  Transmission Date: 20050211
  Serious: Yes (Life-Threatening, Hospitalization)
  Sender: FDA-Public Use
  Company Number: 04-07-0945

PATIENT
  Age: 82 Year
  Sex: Female

DRUGS (7)
  1. METFORMIN HCL [Suspect]
     Indication: DIABETES MELLITUS
     Dosage: 850MG TDS ORAL
     Route: 048
     Dates: end: 20040621
  2. LISINOPRIL [Concomitant]
  3. GLICLAZIDE [Concomitant]
  4. OMEPRAZOLE [Concomitant]
  5. FRUSEMIDE [Concomitant]
  6. ASPIRIN [Concomitant]
  7. DOXAZOSIN [Concomitant]

REACTIONS (5)
  - DEHYDRATION [None]
  - DIARRHOEA [None]
  - LACTIC ACIDOSIS [None]
  - RENAL FAILURE [None]
  - VOMITING [None]
